FAERS Safety Report 20792004 (Version 2)
Quarter: 2022Q4

REPORT INFORMATION
  Report Type: Spontaneous
  Country: PT (occurrence: PT)
  Receive Date: 20220505
  Receipt Date: 20221227
  Transmission Date: 20230113
  Serious: Yes (Death, Other)
  Sender: FDA-Public Use
  Company Number: PT-GILEAD-2022-0576947

PATIENT
  Age: 72 Year
  Sex: Female

DRUGS (1)
  1. TRODELVY [Suspect]
     Active Substance: SACITUZUMAB GOVITECAN-HZIY
     Indication: Triple negative breast cancer
     Dosage: UNK, C1D1
     Route: 042
     Dates: start: 20220324

REACTIONS (5)
  - Neutropenia [Recovering/Resolving]
  - Breast cancer metastatic [Fatal]
  - Mucosal inflammation [Recovered/Resolved]
  - Platelet disorder [Recovered/Resolved]
  - Neutrophil count abnormal [Not Recovered/Not Resolved]

NARRATIVE: CASE EVENT DATE: 20220101
